FAERS Safety Report 20501431 (Version 3)
Quarter: 2023Q2

REPORT INFORMATION
  Report Type: Spontaneous
  Country: US (occurrence: US)
  Receive Date: 20220222
  Receipt Date: 20230501
  Transmission Date: 20230722
  Serious: Yes (Other)
  Sender: FDA-Public Use
  Company Number: US-PFIZER INC-202200241684

PATIENT
  Age: 63 Year
  Sex: Female

DRUGS (2)
  1. XELJANZ [Suspect]
     Active Substance: TOFACITINIB CITRATE
     Indication: Colitis ulcerative
     Dosage: 5 MG, 2X/DAY
     Route: 048
     Dates: start: 202108
  2. XELJANZ [Suspect]
     Active Substance: TOFACITINIB CITRATE
     Dosage: 5 MG, 1X/DAY (PO QD)
     Route: 048

REACTIONS (6)
  - Rectal haemorrhage [Recovered/Resolved]
  - Condition aggravated [Unknown]
  - Stress [Unknown]
  - Muscle spasms [Recovered/Resolved]
  - Nausea [Recovered/Resolved]
  - Off label use [Unknown]
